FAERS Safety Report 24532782 (Version 1)
Quarter: 2024Q4

REPORT INFORMATION
  Report Type: Spontaneous
  Country: CN (occurrence: CN)
  Receive Date: 20241022
  Receipt Date: 20241022
  Transmission Date: 20250114
  Serious: Yes (Death, Hospitalization)
  Sender: STRIDES
  Company Number: CN-STRIDES ARCOLAB LIMITED-2024SP013453

PATIENT
  Age: 20 Year
  Sex: Male

DRUGS (21)
  1. PREDNISOLONE [Suspect]
     Active Substance: PREDNISOLONE
     Indication: B-cell type acute leukaemia
     Dosage: UNK (CHOP REGIMEN)
     Route: 065
     Dates: start: 20211216
  2. DOXORUBICIN [Suspect]
     Active Substance: DOXORUBICIN
     Indication: B-cell type acute leukaemia
     Dosage: UNK (CHOP REGIMEN)
     Route: 065
     Dates: start: 20211216
  3. MEROPENEM [Suspect]
     Active Substance: MEROPENEM
     Indication: Agranulocytosis
     Dosage: UNK
     Route: 065
  4. MEROPENEM [Suspect]
     Active Substance: MEROPENEM
     Indication: Pyrexia
  5. CYCLOPHOSPHAMIDE [Suspect]
     Active Substance: CYCLOPHOSPHAMIDE
     Indication: B-cell type acute leukaemia
     Dosage: 600 MILLIGRAM (ON DAY?1; VDCLP REGIMEN CHEMOTHERAPY)
     Route: 065
     Dates: start: 20211021
  6. CYCLOPHOSPHAMIDE [Suspect]
     Active Substance: CYCLOPHOSPHAMIDE
     Dosage: UNK (CHOP REGIMEN)
     Route: 065
     Dates: start: 20211216
  7. CYCLOPHOSPHAMIDE [Suspect]
     Active Substance: CYCLOPHOSPHAMIDE
     Dosage: 500 MILLIGRAM/SQ. METER, QD (LYMPHABLATIVE CHEMOTHERAPY; FOR 3?DAYS)
     Route: 065
     Dates: start: 20211227
  8. CYCLOPHOSPHAMIDE [Suspect]
     Active Substance: CYCLOPHOSPHAMIDE
     Dosage: 500 MILLIGRAM/SQ. METER, QD (FC REGIMEN CHEMOTHERAPY; FOR 3?DAYS)
     Route: 065
     Dates: start: 20220307
  9. VINCRISTINE [Suspect]
     Active Substance: VINCRISTINE
     Indication: B-cell type acute leukaemia
     Dosage: UNK (CHOP REGIMEN)
     Route: 065
     Dates: start: 20211216
  10. IDARUBICIN [Concomitant]
     Active Substance: IDARUBICIN
     Indication: B-cell type acute leukaemia
     Dosage: 10 MILLIGRAM (DAYS?1 TO 3; VDCLP REGIMEN CHEMOTHERAPY)
     Route: 065
     Dates: start: 20211021
  11. IDARUBICIN [Concomitant]
     Active Substance: IDARUBICIN
     Dosage: 10 MILLIGRAM (FROM DAY?1 TO DAY?3; IDOAP REGIMEN CHEMOTHERAPY)
     Route: 065
  12. VINORELBINE [Concomitant]
     Active Substance: VINORELBINE TARTRATE
     Indication: B-cell type acute leukaemia
     Dosage: 40 MILLIGRAM (ON DAY?1; VDCLP REGIMEN CHEMOTHERAPY)
     Route: 065
     Dates: start: 20211021
  13. VINORELBINE [Concomitant]
     Active Substance: VINORELBINE TARTRATE
     Dosage: 40 MILLIGRAM (FROM DAY?1; IDOAP REGIMEN CHEMOTHERAPY)
     Route: 065
  14. PEGASPARGASE [Concomitant]
     Active Substance: PEGASPARGASE
     Indication: B-cell type acute leukaemia
     Dosage: 3750 INTERNATIONAL UNIT (ON DAY?9; VDCLP REGIMEN CHEMOTHERAPY)
     Route: 065
     Dates: start: 20211021
  15. DEXAMETHASONE [Concomitant]
     Active Substance: DEXAMETHASONE
     Indication: B-cell type acute leukaemia
     Dosage: 10 MILLIGRAM (FROM DAY?1 TO DAY?4; VDCLP REGIMEN CHEMOTHERAPY)
     Route: 065
     Dates: start: 20211021
  16. DEXAMETHASONE [Concomitant]
     Active Substance: DEXAMETHASONE
     Dosage: 10 MILLIGRAM (FROM DAY?1 TO DAY?5; IDOAP REGIMEN CHEMOTHERAPY)
     Route: 065
  17. CYTARABINE [Concomitant]
     Active Substance: CYTARABINE
     Indication: B-cell type acute leukaemia
     Dosage: 200 MILLIGRAM (FROM DAY?1 TO DAY?5; IDOAP REGIMEN CHEMOTHERAPY)
     Route: 065
  18. FLUDARABINE [Concomitant]
     Active Substance: FLUDARABINE PHOSPHATE
     Indication: B-cell type acute leukaemia
     Dosage: 30 MILLIGRAM/SQ. METER, QD (LYMPHABLATIVE CHEMOTHERAPY; FOR 3?DAYS)
     Route: 065
     Dates: start: 20211227
  19. FLUDARABINE [Concomitant]
     Active Substance: FLUDARABINE PHOSPHATE
     Dosage: 30 MILLIGRAM/SQ. METER, QD (FC REGIMEN CHEMOTHERAPY; FOR 3?DAYS)
     Route: 065
     Dates: start: 20220307
  20. TEICOPLANIN [Concomitant]
     Active Substance: TEICOPLANIN
     Indication: Agranulocytosis
     Dosage: UNK
     Route: 065
  21. TEICOPLANIN [Concomitant]
     Active Substance: TEICOPLANIN
     Indication: Pyrexia

REACTIONS (2)
  - B-cell lymphoma recurrent [Fatal]
  - Off label use [Unknown]

NARRATIVE: CASE EVENT DATE: 20211201
